FAERS Safety Report 5097328-1 (Version None)
Quarter: 2006Q3

REPORT INFORMATION
  Report Type: 
  Country: None (occurrence: None)
  Receive Date: 20060906
  Receipt Date: 20060821
  Transmission Date: 20061208
  Serious: Yes (Hospitalization)
  Sender: FDA-Public Use
  Company Number: JP-JPN-A200603235

PATIENT
  Sex: Male

DRUGS (8)
  1. ALLOPURINOL [Suspect]
     Dosage: 100MG THREE TIMES PER DAY
     Route: 048
     Dates: start: 20060719, end: 20060730
  2. DICLOFENAC SODIUM [Suspect]
     Indication: GOUT
     Dosage: 25MG THREE TIMES PER DAY
     Route: 048
     Dates: start: 20060719, end: 20060725
  3. CIMETIDINE [Suspect]
     Indication: GOUT
     Dosage: 200MG THREE TIMES PER DAY
     Route: 048
     Dates: start: 20060719, end: 20060725
  4. 8-HOUR BAYER [Suspect]
     Indication: CEREBRAL INFARCTION
     Dosage: 100MG PER DAY
     Route: 048
     Dates: start: 20050501
  5. BLOPRESS [Suspect]
     Indication: HYPERTENSION
     Dosage: 8MG PER DAY
     Route: 048
     Dates: start: 20050501, end: 20060731
  6. TRIPAMIDE [Suspect]
     Indication: HYPERTENSION
     Dosage: 15MG PER DAY
     Route: 048
     Dates: start: 20050501, end: 20060731
  7. TAGAMET [Concomitant]
     Route: 065
  8. VOLTAREN [Concomitant]
     Route: 065

REACTIONS (12)
  - CHEILITIS [None]
  - CONJUNCTIVAL OEDEMA [None]
  - CYTOMEGALOVIRUS ANTIBODY POSITIVE [None]
  - EPSTEIN-BARR VIRUS ANTIBODY POSITIVE [None]
  - ERYTHEMA [None]
  - ERYTHEMA OF EYELID [None]
  - HERPES SIMPLEX SEROLOGY NEGATIVE [None]
  - LIP BLISTER [None]
  - PYREXIA [None]
  - RASH PAPULAR [None]
  - STEVENS-JOHNSON SYNDROME [None]
  - SWELLING FACE [None]
